FAERS Safety Report 5308809-7 (Version None)
Quarter: 2007Q2

REPORT INFORMATION
  Report Type: 
  Country: None (occurrence: None)
  Receive Date: 20070426
  Receipt Date: 20070417
  Transmission Date: 20071010
  Serious: Yes (Other)
  Sender: FDA-Public Use
  Company Number: US-PFIZER INC-2007031368

PATIENT
  Sex: Female
  Weight: 84.09 kg

DRUGS (7)
  1. SOLU-CORTEF [Suspect]
     Indication: ADRENOCORTICAL INSUFFICIENCY ACUTE
  2. SOLU-CORTEF [Suspect]
  3. SYNTHROID [Concomitant]
  4. CABERGOLINE [Concomitant]
  5. TOLMETIN SODIUM [Concomitant]
  6. ANTIMIGRAINE PREPARATIONS [Concomitant]
  7. CORTEF [Concomitant]

REACTIONS (2)
  - ADRENOCORTICAL INSUFFICIENCY ACUTE [None]
  - SURGERY [None]
